FAERS Safety Report 9933989 (Version 1)
Quarter: 2014Q1

REPORT INFORMATION
  Report Type: Spontaneous
  Country: US (occurrence: US)
  Receive Date: 20140228
  Receipt Date: 20140228
  Transmission Date: 20141002
  Serious: No
  Sender: FDA-Public Use
  Company Number: US-ABBVIE-13P-163-1064379-00

PATIENT
  Age: 85 Year
  Sex: Male
  Weight: 72.64 kg

DRUGS (1)
  1. ANDROGEL 1% [Suspect]
     Indication: BLOOD TESTOSTERONE DECREASED
     Dosage: 5 GRAMS DAILY
     Route: 061
     Dates: start: 2010, end: 201302

REACTIONS (2)
  - Prostatic specific antigen increased [Recovering/Resolving]
  - Asthenia [Not Recovered/Not Resolved]
